FAERS Safety Report 10047692 (Version 2)
Quarter: 2014Q3

REPORT INFORMATION
  Report Type: Report from Study
  Country: JP (occurrence: JP)
  Receive Date: 20140331
  Receipt Date: 20140708
  Transmission Date: 20150326
  Serious: Yes (Other)
  Sender: FDA-Public Use
  Company Number: JP-UCBSA-115805

PATIENT
  Age: 65 Year
  Sex: Female
  Weight: 50 kg

DRUGS (21)
  1. CERTOLIZUMAB PEGOL RA [Suspect]
     Active Substance: CERTOLIZUMAB PEGOL
     Dosage: 200MG SYRINGE
     Route: 058
     Dates: start: 20130712, end: 20130726
  2. FOLIAMIN [Concomitant]
     Active Substance: FOLIC ACID
     Indication: PROPHYLAXIS
     Dosage: 5 MG, UNK
     Route: 048
     Dates: start: 20130419
  3. XYZAL [Concomitant]
     Active Substance: LEVOCETIRIZINE DIHYDROCHLORIDE
     Indication: SEASONAL ALLERGY
     Dosage: 5 MG, UNK
     Route: 048
     Dates: start: 20140314
  4. METOLATE [Suspect]
     Active Substance: METHOTREXATE
     Indication: RHEUMATOID ARTHRITIS
     Dosage: UNK
     Route: 048
     Dates: start: 20131115, end: 20131213
  5. RHEUMATREX [Suspect]
     Active Substance: METHOTREXATE SODIUM
     Indication: RHEUMATOID ARTHRITIS
     Dosage: 4 UNK, UNK
     Route: 048
     Dates: start: 20130419, end: 20130516
  6. PREDNISOLONE. [Concomitant]
     Active Substance: PREDNISOLONE
     Dosage: 4MG DAILY
     Route: 048
     Dates: start: 20130809, end: 20131017
  7. PREDNISOLONE. [Concomitant]
     Active Substance: PREDNISOLONE
     Dosage: 4 UNK, UNK
     Route: 048
     Dates: start: 20130809, end: 20131017
  8. PREDNISOLONE. [Concomitant]
     Active Substance: PREDNISOLONE
     Route: 048
     Dates: start: 20131018, end: 20131114
  9. ACETAMINOPHEN W/CAFF./PROMETHAZINE/SALICYLAM. [Concomitant]
     Indication: NASOPHARYNGITIS
     Dosage: 3 G, ONCE DAILY (QD)
     Route: 048
     Dates: start: 20131004, end: 20131220
  10. ISCOTIN [Concomitant]
     Active Substance: ISONIAZID
     Dosage: 300 MG, UNK
     Route: 048
     Dates: start: 20130809
  11. PREDNISOLONE. [Concomitant]
     Active Substance: PREDNISOLONE
     Dosage: 2MG DAILY
     Route: 048
     Dates: start: 20131115, end: 20141009
  12. PREDNISOLONE. [Concomitant]
     Active Substance: PREDNISOLONE
     Dosage: 1MG DAILY
     Route: 048
     Dates: start: 20140110
  13. SALICYLAMID [Concomitant]
     Indication: NASOPHARYNGITIS
     Dosage: 3 G, ONCE DAILY (QD)
     Route: 048
     Dates: start: 20131004, end: 20131220
  14. CERTOLIZUMAB PEGOL RA [Suspect]
     Active Substance: CERTOLIZUMAB PEGOL
     Indication: RHEUMATOID ARTHRITIS
     Dosage: 200MG SYRINGE
     Route: 058
     Dates: start: 20130809, end: 20140110
  15. METOLATE [Suspect]
     Active Substance: METHOTREXATE
     Dosage: UNK
     Route: 048
     Dates: start: 20131213
  16. RHEUMATREX [Suspect]
     Active Substance: METHOTREXATE SODIUM
     Dosage: 6 UNK, UNK
     Route: 048
     Dates: start: 20130517, end: 20130905
  17. PREDNISOLONE. [Concomitant]
     Active Substance: PREDNISOLONE
     Dosage: 5 UNK, UNK
     Route: 048
     Dates: start: 20130329, end: 20130808
  18. PREDNISOLONE. [Concomitant]
     Active Substance: PREDNISOLONE
     Indication: RHEUMATOID ARTHRITIS
     Dosage: 5MG DAILY
     Route: 048
     Dates: start: 20130329, end: 20130808
  19. PREDNISOLONE. [Concomitant]
     Active Substance: PREDNISOLONE
     Route: 048
     Dates: start: 20131115, end: 20140109
  20. PREDNISOLONE. [Concomitant]
     Active Substance: PREDNISOLONE
     Dosage: 3MG DAILY
     Route: 048
     Dates: start: 20131018, end: 20131114
  21. RHEUMATREX [Suspect]
     Active Substance: METHOTREXATE SODIUM
     Dosage: 8 UNK, UNK
     Route: 048
     Dates: start: 20130906, end: 20131114

REACTIONS (2)
  - Herpes zoster [Recovering/Resolving]
  - Nasopharyngitis [Recovered/Resolved]

NARRATIVE: CASE EVENT DATE: 20131001
